FAERS Safety Report 7225501-2 (Version None)
Quarter: 2011Q1

REPORT INFORMATION
  Report Type: 
  Country: None (occurrence: None)
  Receive Date: 20110113
  Receipt Date: 20110104
  Transmission Date: 20110831
  Serious: Yes (Hospitalization, Disabling, Other)
  Sender: FDA-Public Use
  Company Number: US-MERCK-1008USA00263

PATIENT
  Age: 53 Year
  Sex: Female
  Weight: 51 kg

DRUGS (10)
  1. FOSAMAX [Suspect]
     Indication: OSTEOPOROSIS
     Route: 048
     Dates: start: 19981201, end: 20020521
  2. FOSAMAX [Suspect]
     Route: 048
     Dates: start: 20020521, end: 20040311
  3. LEVOTHYROXINE SODIUM [Concomitant]
     Indication: THYROID DISORDER
     Route: 065
     Dates: start: 19700101
  4. FOSAMAX [Suspect]
     Route: 048
     Dates: start: 20060113, end: 20080226
  5. VITAMINS (UNSPECIFIED) [Concomitant]
     Route: 065
  6. ACTONEL [Suspect]
     Route: 065
     Dates: start: 20040311, end: 20051216
  7. FOSAMAX [Suspect]
     Route: 048
     Dates: start: 20080226, end: 20090101
  8. FOSAMAX [Suspect]
     Route: 048
     Dates: start: 20060113, end: 20080226
  9. FOSAMAX [Suspect]
     Route: 048
     Dates: start: 20020521, end: 20040311
  10. FOSAMAX [Suspect]
     Indication: OSTEOPENIA
     Route: 048
     Dates: start: 19981201, end: 20020521

REACTIONS (28)
  - IMPAIRED HEALING [None]
  - ORAL INFECTION [None]
  - GINGIVAL DISORDER [None]
  - FEMUR FRACTURE [None]
  - HALLUCINATION [None]
  - BREAST DISORDER [None]
  - SCIATICA [None]
  - HEADACHE [None]
  - FRUSTRATION [None]
  - CONGENITAL CEREBROVASCULAR ANOMALY [None]
  - PLANTAR FASCIITIS [None]
  - INTERVERTEBRAL DISC PROTRUSION [None]
  - INSOMNIA [None]
  - SPONDYLOLISTHESIS [None]
  - BONE METABOLISM DISORDER [None]
  - STRESS FRACTURE [None]
  - PAIN IN EXTREMITY [None]
  - MYALGIA [None]
  - TOOTH DISORDER [None]
  - BLOOD CHOLESTEROL INCREASED [None]
  - LARGE INTESTINE PERFORATION [None]
  - DRUG INTOLERANCE [None]
  - ANGER [None]
  - CATARACT [None]
  - OSTEOPOROSIS [None]
  - LOW TURNOVER OSTEOPATHY [None]
  - ARTHROPATHY [None]
  - FATIGUE [None]
